FAERS Safety Report 10499981 (Version 1)
Quarter: 2014Q4

REPORT INFORMATION
  Report Type: Spontaneous
  Country: US (occurrence: US)
  Receive Date: 20141006
  Receipt Date: 20141006
  Transmission Date: 20150528
  Serious: No
  Sender: FDA-Public Use
  Company Number: US-AMGEN INC.-USASP2014057759

PATIENT
  Age: 71 Year
  Sex: Female

DRUGS (1)
  1. PROLIA [Suspect]
     Active Substance: DENOSUMAB
     Indication: PRODUCT USED FOR UNKNOWN INDICATION
     Route: 065

REACTIONS (11)
  - Feeling abnormal [Unknown]
  - Skin exfoliation [Unknown]
  - Gingival disorder [Unknown]
  - Dry skin [Unknown]
  - Visual impairment [Unknown]
  - Mental disorder [Unknown]
  - Tooth disorder [Unknown]
  - Pyrexia [Unknown]
  - Rash macular [Unknown]
  - Pruritus [Unknown]
  - Erythema [Unknown]
